FAERS Safety Report 8348130-6 (Version None)
Quarter: 2012Q2

REPORT INFORMATION
  Report Type: 
  Country: None (occurrence: None)
  Receive Date: 20120509
  Receipt Date: 20120502
  Transmission Date: 20120825
  Serious: Yes (Other)
  Sender: FDA-Public Use
  Company Number: US-JNJFOC-20120505984

PATIENT
  Sex: Female

DRUGS (1)
  1. BENADRYL [Suspect]
     Indication: CELLULITIS
     Route: 048

REACTIONS (6)
  - CENTRAL NERVOUS SYSTEM INFLAMMATION [None]
  - TOOTH DISORDER [None]
  - LOSS OF CONSCIOUSNESS [None]
  - CHEILITIS [None]
  - OFF LABEL USE [None]
  - HALLUCINATION [None]
